FAERS Safety Report 8000499 (Version 3)
Quarter: 2012Q4

REPORT INFORMATION
  Report Type: 
  Country: US (occurrence: US)
  Receive Date: 20110621
  Receipt Date: 20121106
  Transmission Date: 20130627
  Serious: No
  Sender: FDA-Public Use
  Company Number: US-ASTRAZENECA-2011SE05935

PATIENT
  Age: 63 Year
  Sex: Female

DRUGS (4)
  1. ATACAND [Suspect]
     Route: 048
  2. ATACAND HCT [Suspect]
     Route: 048
  3. TOPROL XL [Suspect]
     Route: 048
  4. CRESTOR [Suspect]
     Route: 048

REACTIONS (6)
  - Gout [Unknown]
  - Arthritis [Unknown]
  - Hypertension [Unknown]
  - Nasopharyngitis [Unknown]
  - Liver disorder [Unknown]
  - Intentional drug misuse [Unknown]
